FAERS Safety Report 20224934 (Version 2)
Quarter: 2022Q1

REPORT INFORMATION
  Report Type: Spontaneous
  Country: DE (occurrence: DE)
  Receive Date: 20211223
  Receipt Date: 20220103
  Transmission Date: 20220423
  Serious: Yes (Life-Threatening, Hospitalization, Other)
  Sender: FDA-Public Use
  Company Number: None

PATIENT
  Age: 93 Year
  Sex: Female
  Weight: 60 kg

DRUGS (7)
  1. ENOXAPARIN SODIUM [Suspect]
     Active Substance: ENOXAPARIN SODIUM
     Indication: Thrombosis prophylaxis
     Dosage: 0.4 ML, QD
     Route: 058
     Dates: start: 20211103
  2. BETAHISTINE [Concomitant]
     Active Substance: BETAHISTINE
     Dosage: 12 MG
  3. METOPROLOL SUCCINATE [Concomitant]
     Active Substance: METOPROLOL SUCCINATE
     Dosage: 47.5 MG
  4. METFORMIN [Concomitant]
     Active Substance: METFORMIN HYDROCHLORIDE
     Dosage: 1000 MG
  5. PREDNISOLONE [Concomitant]
     Active Substance: PREDNISOLONE
     Dosage: 5 MG
  6. TORSEMIDE [Concomitant]
     Active Substance: TORSEMIDE
     Dosage: 5 MG
     Route: 065
  7. SILDENAFIL [Concomitant]
     Active Substance: SILDENAFIL
     Dosage: 20 MG
     Route: 065

REACTIONS (2)
  - Respiratory failure [Unknown]
  - Pulmonary embolism [Unknown]

NARRATIVE: CASE EVENT DATE: 20211111
